FAERS Safety Report 4509275-1 (Version None)
Quarter: 2004Q4

REPORT INFORMATION
  Report Type: 
  Country: None (occurrence: None)
  Receive Date: 20041025
  Receipt Date: 20040709
  Transmission Date: 20050328
  Serious: Yes (Hospitalization, Other)
  Sender: FDA-Public Use
  Company Number: US-JNJFOC-20040702862

PATIENT
  Age: 61 Year
  Sex: Female

DRUGS (11)
  1. INFLIXIMAB (INFLIXIMAB, RECOMBINANT) LYOPHILIZED POWDER [Suspect]
     Indication: RHEUMATOID ARTHRITIS
     Dosage: INTRAVENOUS
     Route: 042
     Dates: start: 20010807
  2. ASPIRIN [Concomitant]
  3. CALTRATE (CALCIUM CARBONATE) [Concomitant]
  4. DARVOCET-N 100 [Concomitant]
  5. FOLIC ACID [Concomitant]
  6. LASIX [Concomitant]
  7. METHOTREXATE [Concomitant]
  8. NAPROSYN [Concomitant]
  9. OCUVITE (OCUVITE) [Concomitant]
  10. PREDNISONE [Concomitant]
  11. ACIPHEX [Concomitant]

REACTIONS (1)
  - CARDIAC FAILURE CONGESTIVE [None]
